FAERS Safety Report 4467937-9 (Version None)
Quarter: 2004Q4

REPORT INFORMATION
  Report Type: 
  Country: None (occurrence: None)
  Receive Date: 20041004
  Receipt Date: 20040921
  Transmission Date: 20050328
  Serious: Yes (Hospitalization)
  Sender: FDA-Public Use
  Company Number: STA-AE-04-MTX-440

PATIENT
  Age: 47 Year
  Sex: Male

DRUGS (2)
  1. METHOTREXATE [Suspect]
     Indication: PSORIATIC ARTHROPATHY
     Dosage: ORAL
     Route: 048
  2. REMICADE [Suspect]
     Indication: PSORIATIC ARTHROPATHY
     Dates: end: 20040201

REACTIONS (2)
  - CHEST PAIN [None]
  - TUBERCULOSIS [None]
